FAERS Safety Report 10182043 (Version 1)
Quarter: 2014Q2

REPORT INFORMATION
  Report Type: Report from Study
  Country: DE (occurrence: DE)
  Receive Date: 20140519
  Receipt Date: 20140519
  Transmission Date: 20141212
  Serious: Yes (Hospitalization)
  Sender: FDA-Public Use
  Company Number: DE-AMGEN INC.-DEUCT2014036606

PATIENT
  Age: 35 Year
  Sex: Female
  Weight: 90 kg

DRUGS (2)
  1. ETANERCEPT [Suspect]
     Indication: PRODUCT USED FOR UNKNOWN INDICATION
     Dosage: UNK
     Route: 058
     Dates: end: 20140424
  2. CEFUROXIM                          /00454602/ [Concomitant]
     Dosage: 500 MG, 2X/DAY
     Dates: start: 20140416

REACTIONS (1)
  - Breast abscess [Recovered/Resolved]
